FAERS Safety Report 11364853 (Version 1)
Quarter: 2015Q3

REPORT INFORMATION
  Report Type: Spontaneous
  Country: FR (occurrence: FR)
  Receive Date: 20150811
  Receipt Date: 20150811
  Transmission Date: 20151125
  Serious: Yes (Hospitalization, Other)
  Sender: FDA-Public Use
  Company Number: FR-RB-008436-07

PATIENT
  Age: 2 Day
  Sex: Female
  Weight: 3.14 kg

DRUGS (1)
  1. SUBUTEX [Suspect]
     Active Substance: BUPRENORPHINE HYDROCHLORIDE
     Indication: PRODUCT USED FOR UNKNOWN INDICATION
     Dosage: 4 MG, QD
     Route: 064

REACTIONS (9)
  - Crying [Unknown]
  - Drug withdrawal syndrome neonatal [Unknown]
  - Agitation neonatal [Unknown]
  - Sneezing [Unknown]
  - Hypertonia neonatal [Unknown]
  - Hyperhidrosis [Unknown]
  - Respiration abnormal [Unknown]
  - Weight decrease neonatal [Unknown]
  - Poor sucking reflex [Unknown]

NARRATIVE: CASE EVENT DATE: 20070709
